FAERS Safety Report 7720610-3 (Version None)
Quarter: 2011Q3

REPORT INFORMATION
  Report Type: 
  Country: None (occurrence: None)
  Receive Date: 20110831
  Receipt Date: 20110816
  Transmission Date: 20111222
  Serious: Yes (Hospitalization, Other)
  Sender: FDA-Public Use
  Company Number: US-ELI_LILLY_AND_COMPANY-US201001003349

PATIENT
  Sex: Female
  Weight: 40.363 kg

DRUGS (7)
  1. FORTEO [Suspect]
     Dosage: 20 UG, DAILY (1/D)
  2. GABAPENTIN [Concomitant]
     Dosage: 1 DF, QID
  3. HYDROCODONE BITARTRATE [Concomitant]
     Dosage: 1 DF, QID
     Route: 048
  4. FORTEO [Suspect]
     Indication: OSTEOPOROSIS
     Dosage: 20 UG, DAILY (1/D)
     Dates: start: 20090806
  5. FORTEO [Suspect]
     Dosage: 20 UG, QD
  6. TRAZODONE HYDROCHLORIDE [Concomitant]
     Indication: SLEEP DISORDER
     Dosage: UNK, QD
  7. FORTEO [Suspect]
     Dosage: 20 UG, DAILY (1/D)
     Dates: end: 20101201

REACTIONS (19)
  - DISORIENTATION [None]
  - ARTHRALGIA [None]
  - BACK INJURY [None]
  - OEDEMA PERIPHERAL [None]
  - PNEUMONIA [None]
  - URETHRAL DISORDER [None]
  - NIGHT BLINDNESS [None]
  - FEELING ABNORMAL [None]
  - MEMORY IMPAIRMENT [None]
  - HYPERTENSION [None]
  - DRY MOUTH [None]
  - LYMPHOEDEMA [None]
  - PERICARDIAL EFFUSION [None]
  - FATIGUE [None]
  - MALAISE [None]
  - PLEURAL EFFUSION [None]
  - FALL [None]
  - BRADYPHRENIA [None]
  - BACK PAIN [None]
